FAERS Safety Report 4347615-7 (Version None)
Quarter: 2004Q2

REPORT INFORMATION
  Report Type: 
  Country: None (occurrence: None)
  Receive Date: 20040423
  Receipt Date: 20040423
  Transmission Date: 20050107
  Serious: No
  Sender: FDA-Public Use
  Company Number: None

PATIENT
  Age: 51 Year
  Sex: Female
  Weight: 55.7924 kg

DRUGS (2)
  1. KEPPRA [Suspect]
     Indication: CONVULSION
     Dosage: 2 TABLETS/ DAILY
  2. KEPPRA [Suspect]
     Dosage: 2 TABLETS / DAILY

REACTIONS (5)
  - DRUG INTERACTION [None]
  - DYSGEUSIA [None]
  - NEUROTOXICITY [None]
  - PHARMACEUTICAL PRODUCT COMPLAINT [None]
  - VISUAL DISTURBANCE [None]
